FAERS Safety Report 22038432 (Version 2)
Quarter: 2023Q1

REPORT INFORMATION
  Report Type: Report from Study
  Country: US (occurrence: US)
  Receive Date: 20230227
  Receipt Date: 20230301
  Transmission Date: 20230417
  Serious: No
  Sender: FDA-Public Use
  Company Number: US-002147023-NVSC2023US044462

PATIENT
  Sex: Male

DRUGS (2)
  1. TREPROSTINIL [Suspect]
     Active Substance: TREPROSTINIL
     Indication: Pulmonary arterial hypertension
     Dosage: 60 NG/KG/MIN, CONT (MONTHLY)
     Route: 042
     Dates: start: 202108
  2. TREPROSTINIL [Suspect]
     Active Substance: TREPROSTINIL
     Dosage: UNK (DOSE INCREASED)
     Route: 042
     Dates: start: 20230211

REACTIONS (1)
  - Diarrhoea [Unknown]
